FAERS Safety Report 8649489 (Version 2)
Quarter: 2014Q1

REPORT INFORMATION
  Report Type: Spontaneous
  Country: US (occurrence: None)
  Receive Date: 20120323
  Receipt Date: 20130305
  Transmission Date: 20141002
  Serious: Yes (Hospitalization)
  Sender: FDA-Public Use
  Company Number: 163-21880-11100678

PATIENT
  Age: 70 Year
  Sex: Female

DRUGS (11)
  1. REVLIMID [Suspect]
     Indication: MYELODYSPLASTIC SYNDROME
     Dosage: 10 MG, 1 IN 1 D, PO ; ?
     Route: 048
     Dates: start: 20110925, end: 20110929
  2. PRAVASTATIN [Concomitant]
  3. DIAZEPAM [Concomitant]
  4. ALPRAZOLAM [Concomitant]
  5. LORATADINE [Concomitant]
  6. LOSARTAN / HCTZ (HYZAAR) [Concomitant]
  7. PROCHLORPERAZINE [Concomitant]
  8. EPOETIN ALFA [Concomitant]
  9. DEFERASIROX [Concomitant]
  10. EXJADE (DEFERASIROX) [Concomitant]
  11. PROCRIT (ERYTHROPOIETIN) [Concomitant]

REACTIONS (6)
  - Pneumonia [None]
  - Febrile neutropenia [None]
  - Oral candidiasis [None]
  - Rash erythematous [None]
  - Rash pruritic [None]
  - Rash macular [None]
